FAERS Safety Report 5731321-8 (Version None)
Quarter: 2008Q2

REPORT INFORMATION
  Report Type: 
  Country: None (occurrence: None)
  Receive Date: 20080506
  Receipt Date: 20080423
  Transmission Date: 20081010
  Serious: Yes (Other)
  Sender: FDA-Public Use
  Company Number: 2008010439

PATIENT
  Age: 51 Year
  Sex: Female
  Weight: 102.0593 kg

DRUGS (4)
  1. LISTERINE WHITENING PRE-BRUSH RINSE (NO ACTIVE INGREDIENT) [Suspect]
     Indication: DENTAL DISORDER PROPHYLAXIS
     Dosage: THREE TABLESPOONS ONCE, ORAL
     Route: 048
     Dates: start: 20080417, end: 20080417
  2. MORPHINE [Concomitant]
  3. NEURONTIN [Concomitant]
  4. PERCOCET [Concomitant]

REACTIONS (5)
  - LIP BLISTER [None]
  - ORAL DISCOMFORT [None]
  - OROPHARYNGEAL BLISTERING [None]
  - SWELLING [None]
  - TONGUE BLISTERING [None]
